FAERS Safety Report 17288403 (Version 4)
Quarter: 2020Q1

REPORT INFORMATION
  Report Type: Report from Study
  Country: None (occurrence: CH)
  Receive Date: 20200120
  Receipt Date: 20200215
  Transmission Date: 20200409
  Serious: Yes (Life-Threatening, Hospitalization, Other)
  Sender: FDA-Public Use
  Company Number: CH-ABBVIE-20K-151-3235438-00

PATIENT
  Age: 77 Year
  Sex: Male

DRUGS (7)
  1. DUODOPA [Suspect]
     Active Substance: CARBIDOPA\LEVODOPA
     Dosage: MD:3.0 ML, CR-DAY: 1.8 ML/H, CONTINUOUS?RATE-NIGHT: 0.6 ML/H, ED: 1.5 ML.?24H THERAPY
     Route: 050
     Dates: start: 20200202, end: 202002
  2. DUODOPA [Suspect]
     Active Substance: CARBIDOPA\LEVODOPA
     Dosage: MD:5.0ML,CRD:2.1ML/H, CONTINUOUS RATENIGHT:0.6 ML/H,ED:1.5 ML?24H THERAPY
     Route: 050
     Dates: start: 202002, end: 202002
  3. DUODOPA [Suspect]
     Active Substance: CARBIDOPA\LEVODOPA
     Dosage: MD:5.0 ML, CR-DAY: 2 ML/H, CONTINUOUS?RATE-NIGHT: 0.6 ML/H, ED: 1.5 ML.?24H THERAPY
     Route: 050
     Dates: start: 20200212
  4. DUODOPA [Suspect]
     Active Substance: CARBIDOPA\LEVODOPA
     Dosage: MD:6.0 ML, CRD: 2.4 ML/H, CRN: 0.6 ML/H ED: 1.5 ML/H?24 H THERAPY
     Route: 050
     Dates: start: 20191108
  5. DUODOPA [Suspect]
     Active Substance: CARBIDOPA\LEVODOPA
     Dosage: MD:6.0 ML, CRD: 2.6 ML/H, CRN: 0.6 ML/H, ED: 1.5 ML/H?24 H THERAPY
     Route: 050
     Dates: start: 20190428, end: 20191108
  6. DUODOPA [Suspect]
     Active Substance: CARBIDOPA\LEVODOPA
     Indication: PARKINSON^S DISEASE
     Route: 065
     Dates: start: 20141103, end: 20190428
  7. DUODOPA [Suspect]
     Active Substance: CARBIDOPA\LEVODOPA
     Dosage: MD: 2.0 ML, CR-DAY: 0.5 ML/H,?CONTINUOUS?RATE-NIGHT: 0.5 ML/H, ED: 1.5 ML.?24H THERAPY
     Route: 050
     Dates: start: 202002, end: 20200212

REACTIONS (14)
  - Fall [Recovered/Resolved]
  - Fall [Recovered/Resolved]
  - Epilepsy [Recovered/Resolved]
  - Femoral neck fracture [Recovering/Resolving]
  - Device programming error [Unknown]
  - Loss of consciousness [Recovered/Resolved]
  - Urinary incontinence [Unknown]
  - Hypotension [Unknown]
  - Hyperkinesia [Unknown]
  - Upper limb fracture [Unknown]
  - Incorrect dose administered [Recovered/Resolved]
  - Cystitis [Recovering/Resolving]
  - Muscle spasms [Unknown]
  - Device occlusion [Recovered/Resolved]

NARRATIVE: CASE EVENT DATE: 202001
